FAERS Safety Report 17519217 (Version 7)
Quarter: 2025Q3

REPORT INFORMATION
  Report Type: Spontaneous
  Country: EU (occurrence: EU)
  Receive Date: 20200310
  Receipt Date: 20250724
  Transmission Date: 20251020
  Serious: Yes (Hospitalization, Other)
  Sender: AUROBINDO
  Company Number: EU-MABO-2020002849

PATIENT
  Age: 78 Year
  Sex: Male

DRUGS (22)
  1. CEFTAZIDIME [Suspect]
     Active Substance: CEFTAZIDIME
     Indication: Staphylococcal infection
     Route: 065
  2. CEFTAZIDIME [Suspect]
     Active Substance: CEFTAZIDIME
     Indication: Pseudomonas infection
  3. CEFTAZIDIME [Suspect]
     Active Substance: CEFTAZIDIME
     Indication: Infection
  4. LEVOFLOXACIN [Suspect]
     Active Substance: LEVOFLOXACIN
     Indication: Staphylococcal infection
     Route: 048
  5. LEVOFLOXACIN [Suspect]
     Active Substance: LEVOFLOXACIN
     Indication: Pseudomonas infection
  6. LEVOFLOXACIN [Suspect]
     Active Substance: LEVOFLOXACIN
     Indication: Ankle operation
  7. LEVOFLOXACIN [Suspect]
     Active Substance: LEVOFLOXACIN
     Indication: Infection
  8. LEVOFLOXACIN [Suspect]
     Active Substance: LEVOFLOXACIN
     Indication: Infection
     Route: 048
  9. AMIKACIN [Suspect]
     Active Substance: AMIKACIN
     Indication: Staphylococcal infection
     Route: 065
  10. AMIKACIN [Suspect]
     Active Substance: AMIKACIN
     Indication: Pseudomonas infection
  11. AMIKACIN [Suspect]
     Active Substance: AMIKACIN
     Indication: Infection
  12. LEVOFLOXACIN [Suspect]
     Active Substance: LEVOFLOXACIN
     Indication: Infection
     Route: 042
  13. LEVOFLOXACIN [Suspect]
     Active Substance: LEVOFLOXACIN
     Route: 042
  14. LEVOFLOXACIN [Suspect]
     Active Substance: LEVOFLOXACIN
     Route: 042
  15. LEVOFLOXACIN [Suspect]
     Active Substance: LEVOFLOXACIN
     Route: 042
  16. LEVOFLOXACIN [Suspect]
     Active Substance: LEVOFLOXACIN
     Route: 042
  17. LEVOFLOXACIN [Suspect]
     Active Substance: LEVOFLOXACIN
     Route: 042
  18. LEVOFLOXACIN [Suspect]
     Active Substance: LEVOFLOXACIN
     Route: 042
  19. LEVOFLOXACIN [Suspect]
     Active Substance: LEVOFLOXACIN
     Route: 042
  20. LEVOFLOXACIN [Suspect]
     Active Substance: LEVOFLOXACIN
     Route: 042
  21. LEVOFLOXACIN [Suspect]
     Active Substance: LEVOFLOXACIN
     Route: 042
  22. CEFAZOLIN [Concomitant]
     Active Substance: CEFAZOLIN
     Indication: Product used for unknown indication
     Route: 065

REACTIONS (4)
  - Toxic skin eruption [Recovered/Resolved]
  - Condition aggravated [Recovered/Resolved]
  - Therapeutic product effect incomplete [Unknown]
  - Drug ineffective [Recovered/Resolved]
